FAERS Safety Report 5917507-8 (Version None)
Quarter: 2008Q4

REPORT INFORMATION
  Report Type: 
  Country: None (occurrence: None)
  Receive Date: 20081014
  Receipt Date: 20081008
  Transmission Date: 20090506
  Serious: Yes (Other)
  Sender: FDA-Public Use
  Company Number: US-ELI_LILLY_AND_COMPANY-US200810002024

PATIENT
  Sex: Female

DRUGS (4)
  1. HUMALOG [Suspect]
     Indication: DIABETES MELLITUS
  2. HUMALOG [Suspect]
  3. HUMALOG [Suspect]
  4. LANTUS [Concomitant]
     Indication: DIABETES MELLITUS

REACTIONS (10)
  - ANXIETY [None]
  - CATARACT [None]
  - CHEST INJURY [None]
  - EYE DISORDER [None]
  - EYE HAEMORRHAGE [None]
  - FALL [None]
  - LIGAMENT SPRAIN [None]
  - MUSCULAR WEAKNESS [None]
  - VISUAL ACUITY REDUCED [None]
  - WRIST FRACTURE [None]
